FAERS Safety Report 5707236-8 (Version None)
Quarter: 2008Q2

REPORT INFORMATION
  Report Type: 
  Country: None (occurrence: None)
  Receive Date: 20080414
  Receipt Date: 20080414
  Transmission Date: 20081010
  Serious: Yes (Life-Threatening, Other)
  Sender: FDA-Public Use
  Company Number: None

PATIENT
  Age: 47 Year
  Sex: Female
  Weight: 52.1637 kg

DRUGS (3)
  1. LEXAPRO [Suspect]
     Indication: ANXIETY
     Dosage: 10 MG ONCE A DAY PO
     Route: 048
     Dates: start: 20050801, end: 20060315
  2. LEXAPRO [Suspect]
     Indication: DEPRESSION
     Dosage: 10 MG ONCE A DAY PO
     Route: 048
     Dates: start: 20050801, end: 20060315
  3. LEXAPRO [Suspect]
     Dosage: 10 MG  TWICE A DAY PO

REACTIONS (24)
  - AGITATION [None]
  - ALCOHOL USE [None]
  - ANGER [None]
  - ANXIETY [None]
  - ARTHRALGIA [None]
  - CHILLS [None]
  - DEAFNESS [None]
  - DEPERSONALISATION [None]
  - FALL [None]
  - FATIGUE [None]
  - FEELING ABNORMAL [None]
  - FOOT FRACTURE [None]
  - HIP FRACTURE [None]
  - HYPOAESTHESIA [None]
  - INSOMNIA [None]
  - MEMORY IMPAIRMENT [None]
  - NERVE INJURY [None]
  - NERVOUS SYSTEM DISORDER [None]
  - PALPITATIONS [None]
  - RASH [None]
  - SALIVARY HYPERSECRETION [None]
  - SEROTONIN SYNDROME [None]
  - SEXUAL DYSFUNCTION [None]
  - THINKING ABNORMAL [None]
